FAERS Safety Report 24024254 (Version 3)
Quarter: 2024Q3

REPORT INFORMATION
  Report Type: Report from Study
  Country: IT (occurrence: IT)
  Receive Date: 20240627
  Receipt Date: 20240710
  Transmission Date: 20241017
  Serious: No
  Sender: ROCHE
  Company Number: IT-ROCHE-3146880

PATIENT
  Age: 48 Year
  Sex: Female
  Weight: 57.0 kg

DRUGS (7)
  1. ALECTINIB [Suspect]
     Active Substance: ALECTINIB
     Indication: Lung cancer metastatic
     Route: 048
     Dates: start: 20211206
  2. ASCORBIC ACID\FERRIC PYROPHOSPHATE [Concomitant]
     Active Substance: ASCORBIC ACID\FERRIC PYROPHOSPHATE
     Indication: Anaemia
     Route: 048
     Dates: start: 20220415
  3. ASCORBIC ACID\FERRIC PYROPHOSPHATE [Concomitant]
     Active Substance: ASCORBIC ACID\FERRIC PYROPHOSPHATE
     Route: 048
     Dates: start: 20230102
  4. VASELINE PURE [Concomitant]
     Active Substance: PETROLATUM
     Indication: Constipation
     Route: 048
     Dates: start: 20230102, end: 20230130
  5. VITAMIN C [Concomitant]
     Active Substance: ASCORBIC ACID
     Dosage: 1 TABLET
     Route: 048
     Dates: start: 20230130
  6. FOLIC ACID [Concomitant]
     Active Substance: FOLIC ACID
     Dosage: 1 TABLET
     Route: 048
     Dates: start: 20230130
  7. LORLATINIB [Concomitant]
     Active Substance: LORLATINIB
     Dates: start: 20230909

REACTIONS (3)
  - Depression [Not Recovered/Not Resolved]
  - Visual field defect [Recovered/Resolved]
  - Constipation [Not Recovered/Not Resolved]

NARRATIVE: CASE EVENT DATE: 20220415
